FAERS Safety Report 11406185 (Version 1)
Quarter: 2015Q3

REPORT INFORMATION
  Report Type: Spontaneous
  Country: US (occurrence: US)
  Receive Date: 20150821
  Receipt Date: 20150821
  Transmission Date: 20151125
  Serious: No
  Sender: FDA-Public Use
  Company Number: US-TARO-2015TAR00153

PATIENT
  Age: 65 Year
  Sex: Female
  Weight: 54.42 kg

DRUGS (2)
  1. ATHLETES FOOT NOS [Suspect]
     Active Substance: MICONAZOLE NITRATE OR TERBINAFINE HYDROCHLORIDE OR TOLNAFTATE
     Indication: TINEA PEDIS
     Dosage: APPLIED THROUGHOUT THE DAY
     Route: 061
     Dates: start: 201501, end: 201501
  2. UNKNOWN SUPPLEMENTS FOR IMMUNITY [Concomitant]

REACTIONS (1)
  - Drug ineffective [Recovered/Resolved]

NARRATIVE: CASE EVENT DATE: 201501
